FAERS Safety Report 15057038 (Version 1)
Quarter: 2018Q2

REPORT INFORMATION
  Report Type: Spontaneous
  Country: US (occurrence: US)
  Receive Date: 20180604
  Receipt Date: 20180604
  Transmission Date: 20180711
  Serious: Yes (Hospitalization)
  Sender: FDA-Public Use
  Company Number: None

PATIENT
  Age: 70 Year
  Sex: Male
  Weight: 110.7 kg

DRUGS (20)
  1. LISINOPRIL. [Concomitant]
     Active Substance: LISINOPRIL
  2. PRILOSEC [Concomitant]
     Active Substance: OMEPRAZOLE MAGNESIUM
  3. KEFLEX [Concomitant]
     Active Substance: CEPHALEXIN
  4. CHEMORADIATION [Concomitant]
     Active Substance: UNSPECIFIED INGREDIENT
  5. MIRALAX [Concomitant]
     Active Substance: POLYETHYLENE GLYCOL 3350
  6. CIPRO [Concomitant]
     Active Substance: CIPROFLOXACIN HYDROCHLORIDE
  7. CLARITIN [Concomitant]
     Active Substance: LORATADINE
  8. GEMCITABINE [Suspect]
     Active Substance: GEMCITABINE\GEMCITABINE HYDROCHLORIDE
     Indication: PANCREATIC CARCINOMA
     Dosage: ?          OTHER FREQUENCY:28DAYCYCLE;?
     Route: 042
     Dates: start: 20171023, end: 20171212
  9. OXYCODONE [Concomitant]
     Active Substance: OXYCODONE
  10. GCSF [Concomitant]
     Active Substance: UNSPECIFIED INGREDIENT
  11. METFORMIN [Concomitant]
     Active Substance: METFORMIN HYDROCHLORIDE
  12. LAMISIL [Concomitant]
     Active Substance: TERBINAFINE HYDROCHLORIDE
  13. ZOCOR [Concomitant]
     Active Substance: SIMVASTATIN
  14. TRIAMCINOLONE ACETONIDE. [Concomitant]
     Active Substance: TRIAMCINOLONE ACETONIDE
  15. NAB-PACLITAXEL [Suspect]
     Active Substance: PACLITAXEL
     Indication: PANCREATIC CARCINOMA
     Dosage: ?          OTHER FREQUENCY:28DAYCYCLE;?
     Route: 042
     Dates: start: 20180109, end: 20180202
  16. 5-FU [Concomitant]
     Active Substance: FLUOROURACIL
  17. INSULIN (NOVOLOG) [Concomitant]
  18. LOPRESSOR [Concomitant]
     Active Substance: METOPROLOL TARTRATE
  19. COUMADIN [Concomitant]
     Active Substance: WARFARIN SODIUM
  20. INSULIN (LANTUS) [Concomitant]

REACTIONS (3)
  - Pain [None]
  - Nausea [None]
  - Ileus [None]

NARRATIVE: CASE EVENT DATE: 20180510
